FAERS Safety Report 9551746 (Version 1)
Quarter: 2013Q3

REPORT INFORMATION
  Report Type: Spontaneous
  Country: US (occurrence: None)
  Receive Date: 20130724
  Receipt Date: 20130724
  Transmission Date: 20140515
  Serious: Yes (Other)
  Sender: FDA-Public Use
  Company Number: PHEH2013US006977

PATIENT
  Age: 75 Year
  Sex: Female
  Weight: 68 kg

DRUGS (8)
  1. GLEEVEC [Suspect]
     Indication: CHRONIC MYELOID LEUKAEMIA
     Route: 048
     Dates: start: 201203
  2. SIMVASTATIN [Concomitant]
  3. ATENOLOL [Concomitant]
  4. NORVASC [Concomitant]
  5. LEXAPRO [Concomitant]
  6. ASPIRIN [Concomitant]
  7. VITAMIN D3 [Concomitant]
  8. KRILL OMEGA RED OIL [Concomitant]

REACTIONS (7)
  - Chronic myeloid leukaemia [None]
  - Malignant neoplasm progression [None]
  - Feeling cold [None]
  - Chills [None]
  - Nausea [None]
  - Dyspepsia [None]
  - Eructation [None]
